FAERS Safety Report 5334167-8 (Version None)
Quarter: 2007Q2

REPORT INFORMATION
  Report Type: 
  Country: None (occurrence: None)
  Receive Date: 20070523
  Receipt Date: 20070523
  Transmission Date: 20071010
  Serious: Yes (Other)
  Sender: FDA-Public Use
  Company Number: None

PATIENT
  Sex: Female
  Weight: 63.5036 kg

DRUGS (2)
  1. CETIRIZINE HCL [Suspect]
     Indication: ANTIALLERGIC THERAPY
     Dosage: 10 MG DAILY BEGINNING OF MAY - 3DAYS 2 WEEKS LATER - 1DAY
  2. CETIRIZINE HCL [Suspect]
     Indication: ANTIALLERGIC THERAPY
     Dosage: 10 MG DAILY BEGINNING OF MAY - 3DAYS 2 WEEKS LATER - 1DAY
     Dates: start: 20070501

REACTIONS (2)
  - DRUG HYPERSENSITIVITY [None]
  - PHARMACEUTICAL PRODUCT COMPLAINT [None]
